FAERS Safety Report 20430810 (Version 1)
Quarter: 2022Q1

REPORT INFORMATION
  Report Type: Report from Study
  Country: FR (occurrence: FR)
  Receive Date: 20220204
  Receipt Date: 20220204
  Transmission Date: 20220423
  Serious: Yes (Other)
  Sender: FDA-Public Use
  Company Number: FR-SERVIER-S21006057

PATIENT

DRUGS (8)
  1. PEGASPARGASE [Suspect]
     Active Substance: PEGASPARGASE
     Indication: Acute lymphocytic leukaemia
     Dosage: 690 IU, QD ON D4
     Route: 042
     Dates: start: 20200413, end: 20200413
  2. TN UNSPECIFIED [Concomitant]
     Indication: Acute lymphocytic leukaemia
     Dosage: 0.8 MG, ON D1, D8, AND D15
     Route: 042
     Dates: start: 20200410, end: 20200424
  3. TN UNSPECIFIED [Concomitant]
     Indication: Acute lymphocytic leukaemia
     Dosage: 14 MG, ON D1, D8, AND D15
     Route: 042
     Dates: start: 20200410, end: 20200424
  4. TN UNSPECIFIED [Concomitant]
     Indication: Acute lymphocytic leukaemia
     Dosage: 5.5 MG, ON D1 TO D15
     Route: 048
     Dates: start: 20200410, end: 20200424
  5. TN UNSPECIFIED [Concomitant]
     Indication: Acute lymphocytic leukaemia
     Dosage: 8 MG, ON D4 AND D31
     Route: 037
     Dates: start: 20200413, end: 20200510
  6. TN UNSPECIFIED [Concomitant]
     Indication: Acute lymphocytic leukaemia
     Dosage: 550 MG, ON D29
     Route: 042
     Dates: start: 20200508, end: 20200508
  7. TN UNSPECIFIED [Concomitant]
     Indication: Acute lymphocytic leukaemia
     Dosage: 40 MG, ON D31 TO D34, D38 TO D40
     Route: 042
     Dates: start: 20200510, end: 20200520
  8. TN UNSPECIFIED [Concomitant]
     Indication: Acute lymphocytic leukaemia
     Dosage: 40 MG, ON D29 TO D42
     Route: 048
     Dates: start: 20200508, end: 20200521

REACTIONS (1)
  - Hyperlipidaemia [Recovered/Resolved]

NARRATIVE: CASE EVENT DATE: 20200417
